FAERS Safety Report 6014944-0 (Version None)
Quarter: 2008Q4

REPORT INFORMATION
  Report Type: 
  Country: None (occurrence: None)
  Receive Date: 20081219
  Receipt Date: 20081211
  Transmission Date: 20090506
  Serious: Yes (Death)
  Sender: FDA-Public Use
  Company Number: JP-ABBOTT-08P-087-0493810-00

PATIENT
  Age: 73 Year
  Sex: Male

DRUGS (4)
  1. LEUPROLIDE ACETATE [Suspect]
     Indication: PROSTATE CANCER STAGE III
     Route: 058
     Dates: start: 20061208, end: 20070816
  2. NAFTOPIDIL [Concomitant]
     Indication: BENIGN PROSTATIC HYPERPLASIA
     Route: 048
     Dates: end: 20070914
  3. AMLODIPINE BESILATE [Concomitant]
     Indication: HYPERTENSION
     Route: 048
     Dates: end: 20071008
  4. WARFARIN SODIUM [Concomitant]
     Indication: CARDIAC VALVE DISEASE
     Route: 048
     Dates: end: 20071008

REACTIONS (1)
  - MYOCARDIAL INFARCTION [None]
